FAERS Safety Report 18529770 (Version 1)
Quarter: 2020Q4

REPORT INFORMATION
  Report Type: Spontaneous
  Country: DE (occurrence: DE)
  Receive Date: 20201120
  Receipt Date: 20201120
  Transmission Date: 20210114
  Serious: Yes (Death, Life-Threatening, Hospitalization, Other)
  Sender: FDA-Public Use
  Company Number: DE-BAUSCH-BL-2020-033122

PATIENT
  Sex: Female
  Weight: 71 kg

DRUGS (50)
  1. AMLODIPIN HEXAL [AMLODIPINE MALEATE] [Suspect]
     Active Substance: AMLODIPINE MALEATE
     Dosage: ONGOING AT DISCHARGE FROM REHABILITATION
     Route: 048
     Dates: start: 20180523, end: 20180612
  2. VALSARTAN HEXAL [Suspect]
     Active Substance: VALSARTAN
     Dosage: 1/2 A TABLET OF 320 MG
     Route: 048
     Dates: start: 20180523, end: 20180612
  3. FENTANYL CT [Concomitant]
     Indication: PRODUCT USED FOR UNKNOWN INDICATION
     Dosage: 12 UG/H
     Route: 065
     Dates: start: 201903
  4. PREDNISOLON [Suspect]
     Active Substance: PREDNISOLONE
     Indication: PRODUCT USED FOR UNKNOWN INDICATION
     Route: 065
  5. VALSARTAN - 1 A PHARMA [Suspect]
     Active Substance: VALSARTAN
     Indication: PRODUCT USED FOR UNKNOWN INDICATION
     Route: 065
     Dates: start: 200502
  6. BISOPROLOL PLUS - 1 A PHARMA [Suspect]
     Active Substance: BISOPROLOL FUMARATE\HYDROCHLOROTHIAZIDE
     Indication: PRODUCT USED FOR UNKNOWN INDICATION
     Dosage: 10/25
     Route: 065
     Dates: start: 2014, end: 2018
  7. L-THYROX HEXAL [Suspect]
     Active Substance: LEVOTHYROXINE SODIUM
     Indication: PRODUCT USED FOR UNKNOWN INDICATION
     Dosage: 1.25 TABLETS OF 100 MICROGRAM, ONGOING AT DISCHARGE FROM REHABILITATION
     Route: 048
     Dates: start: 20180524, end: 20180612
  8. DIOVAN [Suspect]
     Active Substance: VALSARTAN
     Indication: PRODUCT USED FOR UNKNOWN INDICATION
     Dosage: 1X80, DAILY (MORNING AND IN THE EVENING)
     Route: 065
     Dates: start: 201001, end: 201302
  9. BISOPROLOL COMP [Concomitant]
     Active Substance: BISOPROLOL FUMARATE\HYDROCHLOROTHIAZIDE
     Indication: PRODUCT USED FOR UNKNOWN INDICATION
     Dosage: ?X 10/25, 1X DAILY (MORNING)
     Route: 065
     Dates: end: 201302
  10. HCT HEXAL [Concomitant]
     Active Substance: HYDROCHLOROTHIAZIDE
     Indication: PRODUCT USED FOR UNKNOWN INDICATION
     Dosage: ? TABLET OF 25 MG
     Route: 048
     Dates: start: 20180524, end: 20180524
  11. MIDAZOLAM. [Concomitant]
     Active Substance: MIDAZOLAM
     Indication: PRODUCT USED FOR UNKNOWN INDICATION
     Dosage: 5MG/1ML
     Route: 065
     Dates: start: 201903
  12. FUROSEMIDE. [Concomitant]
     Active Substance: FUROSEMIDE
     Route: 065
  13. BISOPROLOL-RATIOPHARM [Concomitant]
     Active Substance: BISOPROLOL
     Indication: PRODUCT USED FOR UNKNOWN INDICATION
     Dosage: 1X 5 MG
     Route: 048
     Dates: start: 20180524, end: 20180612
  14. PANTOPRAZOLE [Concomitant]
     Active Substance: PANTOPRAZOLE
     Indication: PRODUCT USED FOR UNKNOWN INDICATION
     Route: 065
     Dates: start: 201901
  15. PARACETAMOL 1 A PHARMA [Concomitant]
     Active Substance: ACETAMINOPHEN
     Indication: PRODUCT USED FOR UNKNOWN INDICATION
     Route: 065
     Dates: start: 201903
  16. L THYROXIN HENNING [Concomitant]
     Active Substance: LEVOTHYROXINE SODIUM
     Dosage: 125 UNK
     Route: 065
     Dates: start: 2016
  17. VALSARTAN. [Suspect]
     Active Substance: VALSARTAN
     Route: 065
     Dates: start: 2005
  18. VALSARTAN. [Suspect]
     Active Substance: VALSARTAN
     Route: 065
     Dates: start: 2017, end: 2018
  19. AMLODIPINE [Suspect]
     Active Substance: AMLODIPINE BESYLATE
     Route: 065
     Dates: start: 2013, end: 2018
  20. BISOPROLOL [Suspect]
     Active Substance: BISOPROLOL
     Indication: PRODUCT USED FOR UNKNOWN INDICATION
     Dosage: 1/2 AN UNIT OF 10/25, ONCE IN THE MORNING
     Route: 065
     Dates: start: 200903
  21. DIOVAN [Suspect]
     Active Substance: VALSARTAN
     Dosage: 160 MG, 1X DAILY (MORNING)
     Route: 065
     Dates: start: 201302
  22. VALSARTAN DURA [Concomitant]
     Active Substance: VALSARTAN
     Indication: PRODUCT USED FOR UNKNOWN INDICATION
     Dosage: 160 MG
     Route: 065
     Dates: start: 201702
  23. MOMETASONE [Concomitant]
     Active Substance: MOMETASONE
     Indication: PRODUCT USED FOR UNKNOWN INDICATION
     Route: 065
  24. IBUPROFEN. [Concomitant]
     Active Substance: IBUPROFEN
     Indication: PRODUCT USED FOR UNKNOWN INDICATION
     Dosage: 1X400, 2X DAILY (MORNING AND EVENING)
     Route: 065
  25. VALSARTAN. [Suspect]
     Active Substance: VALSARTAN
     Route: 065
     Dates: start: 201702, end: 2018
  26. VALSARTAN - 1 A PHARMA [Suspect]
     Active Substance: VALSARTAN
     Route: 065
     Dates: start: 201302, end: 2017
  27. VALSARTAN HEXAL [Suspect]
     Active Substance: VALSARTAN
     Route: 065
     Dates: start: 2014
  28. L-THYROX HEXAL [Suspect]
     Active Substance: LEVOTHYROXINE SODIUM
     Dosage: 125 UNKNOWN
     Route: 065
     Dates: start: 2014, end: 2016
  29. DIOVAN [Suspect]
     Active Substance: VALSARTAN
     Route: 065
     Dates: start: 2013, end: 2013
  30. DIOVAN [Suspect]
     Active Substance: VALSARTAN
     Dosage: 2X 80, 1X DAILY (MORNING)
     Route: 065
     Dates: start: 20130215, end: 201310
  31. FUROSEMIDE. [Concomitant]
     Active Substance: FUROSEMIDE
     Indication: PRODUCT USED FOR UNKNOWN INDICATION
     Dosage: 1 X 40 MG, 2X DAILY
     Route: 065
  32. EUTHYROX [Concomitant]
     Active Substance: LEVOTHYROXINE SODIUM
     Indication: PRODUCT USED FOR UNKNOWN INDICATION
     Dosage: 1X 125, 1X DAILY (MORNING)
     Route: 065
  33. L THYROXIN HENNING [Concomitant]
     Active Substance: LEVOTHYROXINE SODIUM
     Indication: PRODUCT USED FOR UNKNOWN INDICATION
     Dosage: 1 X 125, QD
     Route: 065
     Dates: start: 199003, end: 2018
  34. AMLODIPIN HEXAL [AMLODIPINE MALEATE] [Suspect]
     Active Substance: AMLODIPINE MALEATE
     Indication: PRODUCT USED FOR UNKNOWN INDICATION
     Route: 065
     Dates: start: 2016, end: 2017
  35. AMLODIPINE [Suspect]
     Active Substance: AMLODIPINE BESYLATE
     Indication: PRODUCT USED FOR UNKNOWN INDICATION
     Dosage: 5 UNKNOWN, ONCE IN THE MORNING, ONCE IN THE EVENING
     Route: 065
     Dates: start: 200803
  36. VALSARTAN HEXAL [Suspect]
     Active Substance: VALSARTAN
     Indication: PRODUCT USED FOR UNKNOWN INDICATION
     Route: 065
     Dates: start: 2013
  37. DIOVAN [Suspect]
     Active Substance: VALSARTAN
     Dosage: 1X160, 2X DAILY (MORNING AND EVENING)
     Route: 065
     Dates: start: 201310
  38. HYDROMORPHONE [Concomitant]
     Active Substance: HYDROMORPHONE
     Indication: PRODUCT USED FOR UNKNOWN INDICATION
     Route: 065
     Dates: start: 201902
  39. VALSARTAN. [Suspect]
     Active Substance: VALSARTAN
     Indication: PRODUCT USED FOR UNKNOWN INDICATION
     Dosage: ONCE IN THE MORNING, ONCE IN THE EVENING
     Route: 065
     Dates: start: 201005
  40. VALSARTAN. [Suspect]
     Active Substance: VALSARTAN
     Route: 065
     Dates: start: 2012
  41. HALOPERIDOL NEURAXPHARM [Concomitant]
     Active Substance: HALOPERIDOL
     Indication: PRODUCT USED FOR UNKNOWN INDICATION
     Route: 065
     Dates: start: 201902
  42. DIGIMERCK MINOR [Concomitant]
     Active Substance: DIGITOXIN
     Indication: PRODUCT USED FOR UNKNOWN INDICATION
     Dosage: 0.07 UNK
     Route: 065
     Dates: start: 201901
  43. MACROGOL ABZ BALANCE [Concomitant]
     Active Substance: POLYETHYLENE GLYCOL 3350\POTASSIUM CHLORIDE\SODIUM BICARBONATE\SODIUM CHLORIDE
     Indication: PRODUCT USED FOR UNKNOWN INDICATION
     Route: 065
     Dates: start: 201902
  44. VALSARTAN. [Suspect]
     Active Substance: VALSARTAN
     Route: 065
     Dates: start: 201202
  45. DIOVAN [Suspect]
     Active Substance: VALSARTAN
     Dosage: 1/2 X 160 MG,1X DAILY (EVENING)
     Route: 065
     Dates: start: 201302
  46. DIOVAN [Suspect]
     Active Substance: VALSARTAN
     Route: 065
     Dates: start: 2011, end: 2013
  47. TAVOR [Concomitant]
     Indication: PRODUCT USED FOR UNKNOWN INDICATION
     Dosage: 1 UNK
     Route: 065
     Dates: start: 201902
  48. ECURAL [Concomitant]
     Active Substance: MOMETASONE
     Indication: PRODUCT USED FOR UNKNOWN INDICATION
     Dosage: FAT CREAM
     Route: 065
  49. PANTOPRAZOL AL [Concomitant]
     Active Substance: PANTOPRAZOLE SODIUM
     Indication: PRODUCT USED FOR UNKNOWN INDICATION
     Dosage: 1X 40, 1X DAILY (MORNING), ENTERIC COATED TABLETS
     Route: 065
  50. FERRO-SANOL DUODENAL [Concomitant]
     Active Substance: FERROUS GLYCINE SULFATE
     Indication: PRODUCT USED FOR UNKNOWN INDICATION
     Dosage: 1X DAILY MORNING
     Route: 065

REACTIONS (94)
  - Metastases to central nervous system [Unknown]
  - Erysipelas [Recovering/Resolving]
  - Cataract [Unknown]
  - Erythema [Unknown]
  - Atrial fibrillation [Unknown]
  - Dizziness [Unknown]
  - Urinary retention [Unknown]
  - Hypokalaemia [Unknown]
  - Transient ischaemic attack [Unknown]
  - Renal cyst [Unknown]
  - Iron deficiency [Unknown]
  - Cerumen impaction [Unknown]
  - Productive cough [Unknown]
  - Urinary incontinence [Not Recovered/Not Resolved]
  - Arthralgia [Recovering/Resolving]
  - Renal cell carcinoma [Not Recovered/Not Resolved]
  - Arthralgia [Unknown]
  - Pain in extremity [Recovering/Resolving]
  - Blood pressure increased [Unknown]
  - Ischaemia [Unknown]
  - Fall [Unknown]
  - Hypothyroidism [Unknown]
  - Abscess [Unknown]
  - Adenoma benign [Recovered/Resolved]
  - Fatigue [Unknown]
  - Swelling [Unknown]
  - Melanocytic naevus [Unknown]
  - General physical health deterioration [Recovering/Resolving]
  - Incorrect dose administered [Unknown]
  - Aphasia [Recovering/Resolving]
  - Gait disturbance [Unknown]
  - Diarrhoea [Unknown]
  - Colitis [Unknown]
  - Varicose vein [Unknown]
  - Dyspnoea [Unknown]
  - Feeling hot [Unknown]
  - Peripheral swelling [Unknown]
  - Anaemia [Unknown]
  - Aphthous ulcer [Unknown]
  - Ventricular hypertrophy [Unknown]
  - Metastases to lung [Fatal]
  - Gastroenteritis [Unknown]
  - Cardiac failure [Unknown]
  - Blood glucose abnormal [Unknown]
  - Functional gastrointestinal disorder [Unknown]
  - Dysuria [Recovered/Resolved]
  - Drug intolerance [Unknown]
  - Weight decreased [Unknown]
  - Inflammation [Unknown]
  - Fibroma [Unknown]
  - Rash [Unknown]
  - Weight increased [Unknown]
  - Renal neoplasm [Fatal]
  - Asthenia [Unknown]
  - Osteoarthritis [Unknown]
  - Diabetes mellitus [Unknown]
  - Large intestine polyp [Unknown]
  - Haemorrhoids [Unknown]
  - Joint swelling [Unknown]
  - Anal prolapse [Unknown]
  - Vomiting [Unknown]
  - Osteoporosis [Unknown]
  - Cognitive disorder [Recovering/Resolving]
  - Joint swelling [Recovering/Resolving]
  - Chronic kidney disease [Unknown]
  - Supraventricular tachycardia [Unknown]
  - Pruritus [Unknown]
  - Insomnia [Unknown]
  - Defaecation disorder [Unknown]
  - Induration [Unknown]
  - Pustule [Unknown]
  - Vasogenic cerebral oedema [Unknown]
  - Memory impairment [Recovering/Resolving]
  - Bradycardia [Unknown]
  - Dermatosis [Unknown]
  - Abdominal pain [Unknown]
  - Basal cell carcinoma [Recovered/Resolved]
  - Visual impairment [Unknown]
  - Ventricular extrasystoles [Unknown]
  - Tendon rupture [Unknown]
  - Depression suicidal [Fatal]
  - Disturbance in attention [Unknown]
  - Confusional state [Unknown]
  - Arrhythmia [Unknown]
  - Drug hypersensitivity [Unknown]
  - Aortic dilatation [Unknown]
  - Nephrogenic anaemia [Unknown]
  - Meniscal degeneration [Unknown]
  - Tinnitus [Unknown]
  - Nocturia [Unknown]
  - Adenoma benign [Unknown]
  - Pleural effusion [Recovered/Resolved]
  - Anal incontinence [Not Recovered/Not Resolved]
  - Urinary tract infection [Recovered/Resolved]

NARRATIVE: CASE EVENT DATE: 2007
